FAERS Safety Report 6532245-9 (Version None)
Quarter: 2010Q1

REPORT INFORMATION
  Report Type: 
  Country: None (occurrence: None)
  Receive Date: 20100108
  Receipt Date: 20100106
  Transmission Date: 20100710
  Serious: Yes (Death, Other)
  Sender: FDA-Public Use
  Company Number: PHHY2010JP00837

PATIENT
  Age: 61 Year
  Sex: Female

DRUGS (3)
  1. CYCLOSPORINE [Suspect]
     Indication: SYSTEMIC SCLEROSIS
     Dosage: 75 MG DAILY
     Route: 048
  2. PREDNISOLONE [Concomitant]
     Indication: SYSTEMIC SCLEROSIS
     Dosage: 35 MG, UNK
     Route: 048
  3. METHOTREXATE [Concomitant]
     Indication: RHEUMATOID ARTHRITIS
     Route: 048

REACTIONS (5)
  - HEADACHE [None]
  - INFECTION [None]
  - MULTI-ORGAN FAILURE [None]
  - RHEUMATOID ARTHRITIS [None]
  - SCLERODERMA RENAL CRISIS [None]
